FAERS Safety Report 9157330 (Version 2)
Quarter: 2013Q2

REPORT INFORMATION
  Report Type: Spontaneous
  Country: PL (occurrence: PL)
  Receive Date: 20130312
  Receipt Date: 20130404
  Transmission Date: 20140414
  Serious: Yes (Life-Threatening, Other)
  Sender: FDA-Public Use
  Company Number: PL-ASTELLAS-2013EU002200

PATIENT
  Age: 4 Year
  Sex: Female
  Weight: 15.7 kg

DRUGS (4)
  1. PROGRAF [Suspect]
     Indication: RENAL TRANSPLANT
     Dosage: 2 MG, BID
     Route: 048
     Dates: start: 20130228, end: 20130301
  2. CELLCEPT                           /01275102/ [Concomitant]
     Indication: RENAL TRANSPLANT
     Dosage: 360 MG, BID
     Route: 048
     Dates: start: 20130228
  3. SOLUMEDROL [Concomitant]
     Indication: RENAL TRANSPLANT
     Dosage: 10 MG, QID
     Route: 042
     Dates: start: 20130228
  4. BASILIXIMAB [Concomitant]
     Indication: RENAL TRANSPLANT
     Dosage: 10 MG, UID/QD
     Route: 042
     Dates: start: 20130228

REACTIONS (5)
  - Thrombocytopenia [Not Recovered/Not Resolved]
  - Haemolytic anaemia [Not Recovered/Not Resolved]
  - Coagulopathy [Recovered/Resolved]
  - Urinary bladder haemorrhage [Recovered/Resolved]
  - Peritoneal haemorrhage [Recovered/Resolved]
